FAERS Safety Report 8623248 (Version 6)
Quarter: 2022Q1

REPORT INFORMATION
  Report Type: Spontaneous
  Country: FR (occurrence: FR)
  Receive Date: 20120620
  Receipt Date: 20220218
  Transmission Date: 20220423
  Serious: Yes (Hospitalization, Other)
  Sender: FDA-Public Use
  Company Number: FR-JNJFOC-20120607052

PATIENT
  Age: 0 Year
  Sex: Male
  Weight: 0.87 kg

DRUGS (5)
  1. TOPIRAMATE [Suspect]
     Active Substance: TOPIRAMATE
     Indication: Product used for unknown indication
     Dosage: MOTHER DOSING
     Route: 064
     Dates: end: 20120311
  2. NITRAZEPAM [Suspect]
     Active Substance: NITRAZEPAM
     Indication: Product used for unknown indication
     Dosage: MOTHER DOSING
     Route: 064
     Dates: end: 20120311
  3. TEGRETOL [Suspect]
     Active Substance: CARBAMAZEPINE
     Indication: Product used for unknown indication
     Dosage: MOTHER DOSING
     Route: 064
     Dates: end: 20120311
  4. KEPPRA [Suspect]
     Active Substance: LEVETIRACETAM
     Indication: Product used for unknown indication
     Dosage: MOTHER DOSING
     Route: 064
     Dates: end: 20120311
  5. CATAPRESSAN                        /00171101/ [Concomitant]
     Indication: Product used for unknown indication
     Dates: start: 20120315, end: 201204

REACTIONS (11)
  - Drug withdrawal syndrome neonatal [Recovered/Resolved]
  - Foetal exposure during pregnancy [Recovered/Resolved]
  - Seizure [Unknown]
  - Premature baby [Unknown]
  - Foetal heart rate deceleration abnormality [Unknown]
  - Tachycardia foetal [Unknown]
  - Pneumatosis [Recovering/Resolving]
  - Blood pressure increased [Unknown]
  - Metabolic acidosis [Unknown]
  - Hypotonia [Recovered/Resolved]
  - Low birth weight baby [Unknown]

NARRATIVE: CASE EVENT DATE: 20120301
